FAERS Safety Report 9486648 (Version 4)
Quarter: 2013Q4

REPORT INFORMATION
  Report Type: Report from Study
  Country: GB (occurrence: GB)
  Receive Date: 20130829
  Receipt Date: 20131011
  Transmission Date: 20140711
  Serious: Yes (Hospitalization)
  Sender: FDA-Public Use
  Company Number: GB-INCYTE CORPORATION-2013IN001843

PATIENT
  Age: 67 Year
  Sex: Male
  Weight: 103.1 kg

DRUGS (7)
  1. INC424 [Suspect]
     Indication: MYELOFIBROSIS
     Dosage: 5 MG, BID
     Route: 048
     Dates: start: 20121016, end: 20130812
  2. METFORMIN [Concomitant]
  3. ASPIRIN [Concomitant]
  4. GLICLAZIDE [Concomitant]
  5. PROPIVERINE [Concomitant]
  6. LANSOPRAZOLE [Concomitant]
  7. SIMVASTATIN [Concomitant]

REACTIONS (1)
  - Porphyria [Recovering/Resolving]
